FAERS Safety Report 7769990-3 (Version None)
Quarter: 2011Q3

REPORT INFORMATION
  Report Type: 
  Country: None (occurrence: None)
  Receive Date: 20110922
  Receipt Date: 20100106
  Transmission Date: 20111222
  Serious: Yes (Other)
  Sender: FDA-Public Use
  Company Number: US-ASTRAZENECA-2008UW03301

PATIENT
  Age: 408 Month
  Sex: Male
  Weight: 156 kg

DRUGS (12)
  1. SEROQUEL [Suspect]
     Indication: INSOMNIA
     Dosage: 100-400 MG
     Route: 048
     Dates: start: 20050511
  2. SEROQUEL [Suspect]
     Route: 048
     Dates: start: 20050601, end: 20051201
  3. RISPERDAL [Concomitant]
     Dates: start: 20050701
  4. COLESTID [Concomitant]
     Dosage: 2 QAM, 2QPM
     Dates: start: 20060301
  5. SEROQUEL [Suspect]
     Route: 048
     Dates: end: 20050831
  6. DEPAKOTE [Concomitant]
     Dates: end: 20060801
  7. PROZAC [Concomitant]
  8. DEPAKOTE [Concomitant]
     Dates: start: 20050831
  9. PROZAC [Concomitant]
     Dates: start: 20050511
  10. ACTOS [Concomitant]
     Dosage: QAM
     Dates: start: 20060401
  11. GEODON [Concomitant]
  12. ABILIFY [Concomitant]
     Dosage: 25 MG QAM

REACTIONS (6)
  - TYPE 2 DIABETES MELLITUS [None]
  - ERECTILE DYSFUNCTION [None]
  - BLOOD CHOLESTEROL INCREASED [None]
  - HYPERLIPIDAEMIA [None]
  - DISABILITY [None]
  - HYPERGLYCAEMIA [None]
